FAERS Safety Report 5945455-6 (Version None)
Quarter: 2008Q4

REPORT INFORMATION
  Report Type: 
  Country: None (occurrence: None)
  Receive Date: 20081107
  Receipt Date: 20081027
  Transmission Date: 20090506
  Serious: No
  Sender: FDA-Public Use
  Company Number: BR-PFIZER INC-2008085631

PATIENT
  Sex: Female

DRUGS (2)
  1. PROVERA [Suspect]
     Indication: AMENORRHOEA
     Route: 048
     Dates: start: 20080929
  2. RISPERIDONE [Concomitant]
     Indication: SCHIZOPHRENIA

REACTIONS (1)
  - NO ADVERSE EVENT [None]
